FAERS Safety Report 6546598-9 (Version None)
Quarter: 2010Q1

REPORT INFORMATION
  Report Type: 
  Country: None (occurrence: None)
  Receive Date: 20100119
  Receipt Date: 20100104
  Transmission Date: 20100710
  Serious: Yes (Hospitalization, Other)
  Sender: FDA-Public Use
  Company Number: 2010000005

PATIENT
  Age: 47 Year
  Sex: Female

DRUGS (4)
  1. ERLOTINIB HYDROCHLORIDE [Suspect]
     Indication: BREAST CANCER METASTATIC
     Dosage: (100 MG,DAYS 5-17 OF 28 DAYS CYCLE),ORAL
     Route: 048
     Dates: start: 20090621, end: 20091123
  2. BEVACIZUMAB (INJECTION FOR INFUSION) [Suspect]
     Indication: BREAST CANCER METASTATIC
     Dosage: (500 MG),INTRAVENOUS
     Route: 042
     Dates: start: 20091208
  3. BENDAMUSTINE (BENDAMUSTINE) [Suspect]
     Indication: BREAST CANCER METASTATIC
     Dosage: (120 MG/M2),INTRAVENOUS
     Route: 042
     Dates: start: 20090616, end: 20091103
  4. PACLITAXEL [Suspect]
     Indication: BREAST CANCER METASTATIC
     Dosage: (135 MG),INTRAVENOUS
     Route: 042
     Dates: start: 20091208

REACTIONS (4)
  - BREAST CANCER METASTATIC [None]
  - BRONCHITIS [None]
  - DISEASE PROGRESSION [None]
  - PNEUMOCYSTIS JIROVECI PNEUMONIA [None]
